FAERS Safety Report 10363591 (Version 2)
Quarter: 2014Q3

REPORT INFORMATION
  Report Type: Spontaneous
  Country: US (occurrence: US)
  Receive Date: 20140805
  Receipt Date: 20140919
  Transmission Date: 20150326
  Serious: Yes (Death)
  Sender: FDA-Public Use
  Company Number: US-INCYTE CORPORATION-2014IN002222

PATIENT
  Sex: Female
  Weight: 55.33 kg

DRUGS (13)
  1. MULTIVITAMIN                       /00097801/ [Concomitant]
     Active Substance: VITAMINS
     Dosage: 1 DAILY
  2. CALCIUM +VIT D [Concomitant]
     Active Substance: CALCIUM\VITAMIN D
     Dosage: 1 DAILY
  3. ZOLPIDEM [Concomitant]
     Active Substance: ZOLPIDEM\ZOLPIDEM TARTRATE
     Indication: INSOMNIA
     Dosage: 5 MG TABLET, 1 AT BEDTIME AS NEEDED
  4. IMODIUM A-D [Concomitant]
     Active Substance: LOPERAMIDE HYDROCHLORIDE
     Dosage: 2 MG TABLET, 1 DAILY AS NEEDED
  5. ZINC [Concomitant]
     Active Substance: ZINC\ZINC CHLORIDE
     Dosage: 10 MG TABLET, 3 WEEKLY
  6. COSAMIN DS                         /07631601/ [Concomitant]
  7. LOVENOX [Concomitant]
     Active Substance: ENOXAPARIN SODIUM
     Indication: PLEURAL EFFUSION
     Dosage: 1 ML
     Route: 058
  8. WARFARIN [Concomitant]
     Active Substance: WARFARIN
     Indication: ATRIAL FIBRILLATION
     Dosage: 5 MG, QD
  9. DIGOXIN. [Concomitant]
     Active Substance: DIGOXIN
     Dosage: 50 MCG, QD
  10. ACETAMINOPHEN. [Concomitant]
     Active Substance: ACETAMINOPHEN
     Dosage: 500 MG TABLET, 1 DAILY AS NEEDED
  11. OCUVITE [Concomitant]
     Active Substance: VITAMINS
     Dosage: 1 DAILY
  12. JAKAFI [Suspect]
     Active Substance: RUXOLITINIB
     Indication: MYELOFIBROSIS
     Dosage: 15 MG, BID
     Route: 048
     Dates: start: 20111229, end: 20140720
  13. HYDROCODONE BITARTRATE AND ACETAMINOPHEN [Concomitant]
     Active Substance: ACETAMINOPHEN\HYDROCODONE BITARTRATE
     Dosage: 1 TWICE A DAY

REACTIONS (2)
  - Malignant pleural effusion [Fatal]
  - Lung cancer metastatic [Fatal]
